FAERS Safety Report 4411866-3 (Version None)
Quarter: 2004Q3

REPORT INFORMATION
  Report Type: 
  Country: None (occurrence: None)
  Receive Date: 20040730
  Receipt Date: 20030602
  Transmission Date: 20050211
  Serious: No
  Sender: FDA-Public Use
  Company Number: US-GLAXOSMITHKLINE-A0410563A

PATIENT
  Age: 91 Year
  Sex: Male

DRUGS (1)
  1. ZANTAC [Suspect]
     Dosage: 150MG PER DAY
     Route: 048

REACTIONS (1)
  - EYE SWELLING [None]
